FAERS Safety Report 8856517 (Version 1)
Quarter: 2012Q4

REPORT INFORMATION
  Report Type: 
  Country: US (occurrence: US)
  Receive Date: 20121023
  Receipt Date: 20121023
  Transmission Date: 20130627
  Serious: No
  Sender: FDA-Public Use
  Company Number: US-AMGEN-USASP2012057205

PATIENT
  Age: 50 Year
  Sex: Female

DRUGS (7)
  1. ENBREL [Suspect]
     Indication: PRODUCT USED FOR UNKNOWN INDICATION
     Dosage: 50 mg, Every Monaday
     Route: 058
  2. VITAMIN B12                        /00056201/ [Concomitant]
     Dosage: 500 mcg, UNK
  3. FISH OIL [Concomitant]
     Dosage: UNK
  4. VITAMIN D3 [Concomitant]
     Dosage: 400 unit, UNK
  5. FLUCONAZOLE [Concomitant]
     Dosage: 100 mg, UNK
  6. BIOTIN [Concomitant]
     Dosage: 5000 UNK, UNK
  7. PREDNISOLONE [Concomitant]
     Dosage: 5 mg, UNK

REACTIONS (4)
  - Localised infection [Unknown]
  - Diarrhoea [Unknown]
  - Injection site pruritus [Unknown]
  - Rash [Unknown]
